FAERS Safety Report 23748854 (Version 1)
Quarter: 2024Q2

REPORT INFORMATION
  Report Type: Spontaneous
  Country: ES (occurrence: ES)
  Receive Date: 20240416
  Receipt Date: 20240416
  Transmission Date: 20240716
  Serious: Yes (Other)
  Sender: FDA-Public Use
  Company Number: None

PATIENT
  Age: 70 Year
  Sex: Female

DRUGS (4)
  1. FULVESTRANT [Suspect]
     Active Substance: FULVESTRANT
     Indication: Product used for unknown indication
     Dates: start: 20240208
  2. ALPELISIB [Suspect]
     Active Substance: ALPELISIB
     Indication: Breast cancer
     Route: 048
     Dates: start: 20240208, end: 20240305
  3. BENADON 300 mg COMPRIMIDOS RECUBIERTOS CON PELICULA, 20 comprimidos [Concomitant]
     Indication: Product used for unknown indication
     Route: 048
     Dates: start: 20240118
  4. Famotidina 20 mg comprimido [Concomitant]
     Indication: Product used for unknown indication
     Route: 048
     Dates: start: 20230206

REACTIONS (2)
  - Hyperglycaemia [Recovering/Resolving]
  - Rash maculo-papular [Recovering/Resolving]

NARRATIVE: CASE EVENT DATE: 20240227
